FAERS Safety Report 23424870 (Version 1)
Quarter: 2024Q1

REPORT INFORMATION
  Report Type: Spontaneous
  Country: MY (occurrence: MY)
  Receive Date: 20240121
  Receipt Date: 20240121
  Transmission Date: 20240410
  Serious: Yes (Other)
  Sender: FDA-Public Use
  Company Number: MY-STRIDES ARCOLAB LIMITED-2024SP000599

PATIENT
  Age: 65 Year
  Sex: Female

DRUGS (1)
  1. GABAPENTIN [Suspect]
     Active Substance: GABAPENTIN
     Indication: Pain
     Dosage: 300 MILLIGRAM, AT BED TIME (300 MILLIGRAM, NIGHTLY FOR 2 CONSECUTIVE DAYS)
     Route: 048

REACTIONS (3)
  - Myoclonus [Recovered/Resolved]
  - Jaw disorder [Recovered/Resolved]
  - Off label use [Unknown]
